FAERS Safety Report 25074359 (Version 1)
Quarter: 2025Q1

REPORT INFORMATION
  Report Type: Spontaneous
  Country: US (occurrence: US)
  Receive Date: 20250313
  Receipt Date: 20250313
  Transmission Date: 20250409
  Serious: Yes (Other)
  Sender: BAUSCH AND LOMB
  Company Number: US-BAUSCHBL-2025BNL004259

PATIENT
  Age: 71 Year
  Sex: Male

DRUGS (9)
  1. BRIMONIDINE [Suspect]
     Active Substance: BRIMONIDINE TARTRATE
     Indication: Intraocular pressure test abnormal
     Route: 061
  2. DORZOLAMIDE\TIMOLOL [Suspect]
     Active Substance: DORZOLAMIDE\TIMOLOL
     Indication: Intraocular pressure test abnormal
     Dosage: 22.3-6.8 MG/ML
     Route: 061
  3. DORZOLAMIDE\TIMOLOL [Suspect]
     Active Substance: DORZOLAMIDE\TIMOLOL
     Dosage: 22.3-6.8 MG/ML
     Route: 061
  4. LATANOPROST [Suspect]
     Active Substance: LATANOPROST
     Indication: Intraocular pressure test abnormal
     Route: 061
  5. TIMOLOL [Suspect]
     Active Substance: TIMOLOL
     Indication: Intraocular pressure test abnormal
     Route: 061
  6. TIMOLOL [Suspect]
     Active Substance: TIMOLOL
     Route: 061
  7. NETARSUDIL [Suspect]
     Active Substance: NETARSUDIL
     Indication: Intraocular pressure test abnormal
     Route: 061
  8. LATANOPROST\NETARSUDIL MESYLATE [Suspect]
     Active Substance: LATANOPROST\NETARSUDIL MESYLATE
     Indication: Intraocular pressure test abnormal
     Dosage: 0.02-0.005 %
     Route: 061
  9. TRAVOPROST [Suspect]
     Active Substance: TRAVOPROST
     Indication: Intraocular pressure test abnormal
     Route: 061

REACTIONS (1)
  - Drug hypersensitivity [Unknown]
